FAERS Safety Report 11289635 (Version 2)
Quarter: 2015Q3

REPORT INFORMATION
  Report Type: Report from Study
  Country: DE (occurrence: DE)
  Receive Date: 20150721
  Receipt Date: 20150730
  Transmission Date: 20151125
  Serious: Yes (Hospitalization, Other)
  Sender: FDA-Public Use
  Company Number: PHHY2014DE053390

PATIENT
  Sex: Female
  Weight: 58 kg

DRUGS (4)
  1. GABAPENTIN. [Concomitant]
     Active Substance: GABAPENTIN
     Indication: FORMICATION
     Dosage: 800 MG, TID
     Route: 048
     Dates: start: 20090910, end: 20110725
  2. GILENYA [Suspect]
     Active Substance: FINGOLIMOD HYDROCHLORIDE
     Indication: MULTIPLE SCLEROSIS
     Dosage: 0.5 MG, QD
     Route: 048
     Dates: start: 20110722, end: 20110907
  3. GILENYA [Suspect]
     Active Substance: FINGOLIMOD HYDROCHLORIDE
     Dosage: 0.5 MG, QD
     Route: 048
     Dates: start: 20111105
  4. APYDAN [Concomitant]
     Active Substance: OXCARBAZEPINE
     Indication: FORMICATION
     Dosage: 100 MG, TID
     Route: 048
     Dates: start: 20090813, end: 20110725

REACTIONS (4)
  - Personality disorder [Not Recovered/Not Resolved]
  - Panic disorder [Recovered/Resolved]
  - Depression [Recovered/Resolved]
  - Panic disorder [Recovered/Resolved]

NARRATIVE: CASE EVENT DATE: 20131208
